FAERS Safety Report 8550150-3 (Version None)
Quarter: 2012Q3

REPORT INFORMATION
  Report Type: 
  Country: None (occurrence: None)
  Receive Date: 20120730
  Receipt Date: 20110311
  Transmission Date: 20120928
  Serious: No
  Sender: FDA-Public Use
  Company Number: US-ALLERGAN-1103528US

PATIENT
  Age: 65 Year
  Sex: Female

DRUGS (1)
  1. LUMIGAN [Suspect]
     Indication: ABNORMAL SENSATION IN EYE
     Dosage: 1 GTT, QD
     Route: 047
     Dates: start: 20110114

REACTIONS (3)
  - VISION BLURRED [None]
  - EYE DISCHARGE [None]
  - LACRIMATION INCREASED [None]
